FAERS Safety Report 9090067 (Version 1)
Quarter: 2013Q1

REPORT INFORMATION
  Report Type: Report from Study
  Country: US (occurrence: US)
  Receive Date: 20130201
  Receipt Date: 20130201
  Transmission Date: 20140127
  Serious: No
  Sender: FDA-Public Use
  Company Number: US-ABBOTT-12P-163-1025696-00

PATIENT
  Age: 66 None
  Sex: Female
  Weight: 137.11 kg

DRUGS (1)
  1. HUMIRA [Suspect]
     Indication: PSORIATIC ARTHROPATHY
     Route: 058
     Dates: start: 20120312

REACTIONS (4)
  - Cough [Recovering/Resolving]
  - Pneumonia [Recovered/Resolved]
  - Ear infection [Recovering/Resolving]
  - Sinusitis [Recovering/Resolving]
